FAERS Safety Report 20871691 (Version 1)
Quarter: 2022Q2

REPORT INFORMATION
  Report Type: Spontaneous
  Country: CZ (occurrence: CZ)
  Receive Date: 20220525
  Receipt Date: 20220525
  Transmission Date: 20220721
  Serious: Yes (Other)
  Sender: FDA-Public Use
  Company Number: CZ-PFIZER INC-202200734992

PATIENT
  Age: 45 Year
  Sex: Male

DRUGS (2)
  1. IDARUBICIN HYDROCHLORIDE [Suspect]
     Active Substance: IDARUBICIN HYDROCHLORIDE
     Indication: Minimal residual disease
     Dosage: UNK
     Dates: start: 202112
  2. FLUDARABINE PHOSPHATE [Suspect]
     Active Substance: FLUDARABINE PHOSPHATE
     Indication: Minimal residual disease
     Dosage: UNK
     Dates: start: 202112

REACTIONS (4)
  - Febrile neutropenia [Recovered/Resolved]
  - Bacterial sepsis [Recovered/Resolved]
  - Neutropenic colitis [Recovered/Resolved]
  - Respiratory syncytial virus bronchitis [Recovered/Resolved]
